FAERS Safety Report 14185822 (Version 1)
Quarter: 2017Q4

REPORT INFORMATION
  Report Type: Spontaneous
  Country: US (occurrence: None)
  Receive Date: 20171112
  Receipt Date: 20171112
  Transmission Date: 20180321
  Serious: No
  Sender: FDA-Public Use
  Company Number: None

PATIENT
  Age: 66 Year
  Sex: Male

DRUGS (1)
  1. HARVONI [Suspect]
     Active Substance: LEDIPASVIR\SOFOSBUVIR
     Indication: HEPATITIS C
     Dosage: 1 TABLET DAILY ORAL
     Route: 048
     Dates: start: 20170816, end: 20170823

REACTIONS (3)
  - Malaise [None]
  - Constipation [None]
  - Therapy cessation [None]

NARRATIVE: CASE EVENT DATE: 20170823
